FAERS Safety Report 11035812 (Version 2)
Quarter: 2015Q2

REPORT INFORMATION
  Report Type: Spontaneous
  Country: VE (occurrence: VE)
  Receive Date: 20150415
  Receipt Date: 20150417
  Transmission Date: 20150821
  Serious: Yes (Other)
  Sender: FDA-Public Use
  Company Number: VE-ABBVIE-15K-178-1374878-00

PATIENT
  Sex: Female

DRUGS (5)
  1. HUMIRA [Suspect]
     Active Substance: ADALIMUMAB
     Route: 058
     Dates: start: 201411, end: 201411
  2. MABTHERA [Suspect]
     Active Substance: RITUXIMAB
     Indication: SJOGREN^S SYNDROME
  3. PLAQUINOL [Concomitant]
     Active Substance: HYDROXYCHLOROQUINE SULFATE
     Indication: PRODUCT USED FOR UNKNOWN INDICATION
  4. HUMIRA [Suspect]
     Active Substance: ADALIMUMAB
     Indication: RHEUMATOID ARTHRITIS
     Route: 058
     Dates: start: 2006, end: 2014
  5. MABTHERA [Suspect]
     Active Substance: RITUXIMAB
     Indication: RHEUMATOID ARTHRITIS
     Route: 065
     Dates: start: 201411, end: 201411

REACTIONS (4)
  - Tuberculin test positive [Recovered/Resolved]
  - Gastrointestinal disorder [Recovering/Resolving]
  - Drug ineffective [Unknown]
  - Sjogren^s syndrome [Unknown]

NARRATIVE: CASE EVENT DATE: 2012
